FAERS Safety Report 25853437 (Version 1)
Quarter: 2025Q3

REPORT INFORMATION
  Report Type: Spontaneous
  Country: US (occurrence: None)
  Receive Date: 20250926
  Receipt Date: 20250926
  Transmission Date: 20251021
  Serious: Yes (Hospitalization)
  Sender: FDA-CTU
  Company Number: None

PATIENT
  Age: 80 Year
  Sex: Male

DRUGS (2)
  1. RAYALDEE [Suspect]
     Active Substance: CALCIFEDIOL
     Indication: Hyperparathyroidism secondary
     Dosage: FREQUENCY : DAILY;?
     Route: 048
     Dates: start: 20230504
  2. RAYALDEE [Suspect]
     Active Substance: CALCIFEDIOL

REACTIONS (3)
  - Foot operation [None]
  - Cardiac disorder [None]
  - Intentional dose omission [None]

NARRATIVE: CASE EVENT DATE: 20250801
